FAERS Safety Report 5701904-X (Version None)
Quarter: 2008Q2

REPORT INFORMATION
  Report Type: 
  Country: None (occurrence: None)
  Receive Date: 20080411
  Receipt Date: 20080404
  Transmission Date: 20081010
  Serious: Yes (Other)
  Sender: FDA-Public Use
  Company Number: BR-ASTRAZENECA-2008UW07073

PATIENT
  Age: 43 Year
  Sex: Female
  Weight: 57 kg

DRUGS (2)
  1. ARIMIDEX [Suspect]
     Indication: BREAST CANCER
     Route: 048
     Dates: start: 20070801
  2. NOLVADEX [Suspect]
     Indication: BREAST CANCER
     Route: 048
     Dates: start: 20031101, end: 20070701

REACTIONS (5)
  - ALOPECIA [None]
  - ENDOMETRIAL HYPERTROPHY [None]
  - HOT FLUSH [None]
  - HYPERCHOLESTEROLAEMIA [None]
  - OSTEOPENIA [None]
